FAERS Safety Report 18373710 (Version 7)
Quarter: 2024Q2

REPORT INFORMATION
  Report Type: Report from Study
  Country: JP (occurrence: JP)
  Receive Date: 20201013
  Receipt Date: 20240412
  Transmission Date: 20240715
  Serious: Yes (Hospitalization)
  Sender: FDA-Public Use
  Company Number: JP-ABBVIE-18S-087-2512089-00

PATIENT
  Age: 76 Year
  Sex: Female
  Weight: 47 kg

DRUGS (20)
  1. CARBIDOPA\LEVODOPA [Suspect]
     Active Substance: CARBIDOPA\LEVODOPA
     Indication: Parkinson^s disease
     Dosage: MD: 8 ML CD: 2.0 ML/HR ? 16 HR ED: 1 ML/UNIT ? 3
     Route: 050
     Dates: start: 20180814, end: 20180816
  2. CARBIDOPA\LEVODOPA [Suspect]
     Active Substance: CARBIDOPA\LEVODOPA
     Dosage: MD: 8 ML CD: 2.5 ML/HR ? 16 HR ED: 1 ML/UNIT ? 2
     Route: 050
     Dates: start: 20180817, end: 20180822
  3. CARBIDOPA\LEVODOPA [Suspect]
     Active Substance: CARBIDOPA\LEVODOPA
     Dosage: MD: 8 ML CD: 2.5 ML/HR ? 16 HR
     Route: 050
     Dates: start: 20180824, end: 20180830
  4. CARBIDOPA\LEVODOPA [Suspect]
     Active Substance: CARBIDOPA\LEVODOPA
     Dosage: MD: 8 ML CD: 2.6 ML/HR ? 16 HR
     Route: 050
     Dates: start: 20180831, end: 20180901
  5. CARBIDOPA\LEVODOPA [Suspect]
     Active Substance: CARBIDOPA\LEVODOPA
     Dosage: MD: 8 ML CD: 2.7 ML/HR ? 16 HR
     Route: 050
     Dates: start: 20180902, end: 20180903
  6. CARBIDOPA\LEVODOPA [Suspect]
     Active Substance: CARBIDOPA\LEVODOPA
     Dosage: MD: 8 ML CD: 3.0 ML/HR ? 16 HR
     Route: 050
     Dates: start: 20180904, end: 20180909
  7. CARBIDOPA\LEVODOPA [Suspect]
     Active Substance: CARBIDOPA\LEVODOPA
     Dosage: MD: 8 ML CD: 3.0 ML/HR ? 16 HR
     Route: 050
     Dates: start: 20180910, end: 20180917
  8. CARBIDOPA\LEVODOPA [Suspect]
     Active Substance: CARBIDOPA\LEVODOPA
     Dosage: MD: 8 ML CD: 3.2 ML/HR ? 16 HR
     Route: 050
     Dates: start: 20180918, end: 20190317
  9. CARBIDOPA\LEVODOPA [Suspect]
     Active Substance: CARBIDOPA\LEVODOPA
     Dosage: MD: 8 ML CD: 3.1 ML/HR ? 16 HR
     Route: 050
     Dates: start: 20190318, end: 20190318
  10. CARBIDOPA\LEVODOPA [Suspect]
     Active Substance: CARBIDOPA\LEVODOPA
     Dosage: MD: 8 ML CD: 2.8 ML/HR ? 16 HRS
     Route: 050
     Dates: start: 20190319
  11. CARBIDOPA\LEVODOPA [Concomitant]
     Active Substance: CARBIDOPA\LEVODOPA
     Indication: Parkinson^s disease
     Route: 048
  12. CARBIDOPA\LEVODOPA [Concomitant]
     Active Substance: CARBIDOPA\LEVODOPA
     Indication: Parkinson^s disease
     Route: 048
     Dates: start: 20180822, end: 20180823
  13. ROTIGOTINE [Concomitant]
     Active Substance: ROTIGOTINE
     Indication: Parkinson^s disease
     Route: 062
     Dates: start: 20180822, end: 20180826
  14. ROTIGOTINE [Concomitant]
     Active Substance: ROTIGOTINE
     Indication: Parkinson^s disease
     Route: 062
     Dates: start: 20180827, end: 20180829
  15. ROTIGOTINE [Concomitant]
     Active Substance: ROTIGOTINE
     Indication: Parkinson^s disease
     Route: 062
     Dates: start: 20180830, end: 20180903
  16. ROTIGOTINE [Concomitant]
     Active Substance: ROTIGOTINE
     Indication: Parkinson^s disease
     Route: 062
     Dates: start: 20180904, end: 20180907
  17. ESOMEPRAZOLE [Concomitant]
     Active Substance: ESOMEPRAZOLE
     Indication: Product used for unknown indication
     Dosage: HYDRATE
     Route: 048
     Dates: start: 20180816
  18. ZOLPIDEM TARTRATE [Concomitant]
     Active Substance: ZOLPIDEM TARTRATE
     Indication: Product used for unknown indication
     Route: 048
     Dates: start: 20180912
  19. LORAZEPAM [Concomitant]
     Active Substance: LORAZEPAM
     Indication: Product used for unknown indication
     Route: 048
     Dates: start: 20181005
  20. KETOPROFEN [Concomitant]
     Active Substance: KETOPROFEN
     Indication: Product used for unknown indication
     Route: 062
     Dates: start: 20181024

REACTIONS (6)
  - Fall [Unknown]
  - Stoma site erythema [Unknown]
  - Femur fracture [Recovered/Resolved]
  - Device issue [Unknown]
  - Fracture [Unknown]
  - Malaise [Unknown]

NARRATIVE: CASE EVENT DATE: 20201009
